FAERS Safety Report 5600703-7 (Version None)
Quarter: 2008Q1

REPORT INFORMATION
  Report Type: 
  Country: None (occurrence: None)
  Receive Date: 20080111
  Receipt Date: 20070824
  Transmission Date: 20080703
  Serious: Yes (Other)
  Sender: FDA-Public Use
  Company Number: HQWYE282113JAN04

PATIENT
  Age: 59 Year
  Sex: Female

DRUGS (1)
  1. PREMPRO [Suspect]
     Indication: HORMONE REPLACEMENT THERAPY
     Dosage: UNSPECIFIED DOSE, ORAL
     Route: 048
     Dates: start: 19990101, end: 20011223

REACTIONS (1)
  - ISCHAEMIC STROKE [None]
